FAERS Safety Report 9773550 (Version 1)
Quarter: 2013Q4

REPORT INFORMATION
  Report Type: Spontaneous
  Country: DK (occurrence: FR)
  Receive Date: 20131219
  Receipt Date: 20131219
  Transmission Date: 20140711
  Serious: Yes (Hospitalization)
  Sender: FDA-Public Use
  Company Number: FR-FRI-1000052353

PATIENT
  Age: 83 Year
  Sex: Female

DRUGS (5)
  1. ESCITALOPRAM [Suspect]
     Indication: DEPRESSION
     Dosage: 1 DF
     Route: 048
     Dates: start: 2005
  2. CACIT VITAMIN D3 [Suspect]
     Indication: OSTEOPOROSIS
     Dosage: 500 MG/440 IU
     Route: 048
     Dates: start: 20110217
  3. SPECIAFOLDINE [Suspect]
     Dosage: 2 DF
     Route: 048
     Dates: start: 201104
  4. APROVEL [Suspect]
     Indication: HYPERTENSION
     Dosage: 1 DF
     Route: 048
     Dates: start: 2008
  5. DOLIPRANE [Suspect]
     Indication: ARTHRALGIA
     Dosage: 3 DF

REACTIONS (1)
  - Pruritus [Not Recovered/Not Resolved]
